FAERS Safety Report 24080780 (Version 6)
Quarter: 2024Q4

REPORT INFORMATION
  Report Type: Report from Study
  Country: JP (occurrence: JP)
  Receive Date: 20240711
  Receipt Date: 20241115
  Transmission Date: 20250115
  Serious: Yes (Other)
  Sender: ABBVIE
  Company Number: JP-JNJFOC-20240475400

PATIENT
  Age: 74 Year
  Sex: Female

DRUGS (3)
  1. IMBRUVICA [Suspect]
     Active Substance: IBRUTINIB
     Indication: Waldenstrom^s macroglobulinaemia
     Route: 048
     Dates: start: 20240401, end: 20240515
  2. IMBRUVICA [Suspect]
     Active Substance: IBRUTINIB
     Indication: Waldenstrom^s macroglobulinaemia
     Route: 048
     Dates: start: 20240528, end: 20240607
  3. PREDONINE [Concomitant]
     Active Substance: PREDNISOLONE
     Indication: Pruritus
     Dosage: DOSE UNKNOWN
     Route: 042
     Dates: start: 20240610, end: 20240620

REACTIONS (17)
  - Pruritus [Not Recovered/Not Resolved]
  - Eczema [Recovered/Resolved]
  - Cough [Not Recovered/Not Resolved]
  - Rash macular [Recovering/Resolving]
  - Heart rate increased [Recovered/Resolved]
  - Erythema [Not Recovered/Not Resolved]
  - Muscular weakness [Recovering/Resolving]
  - Arthralgia [Not Recovered/Not Resolved]
  - Blood pressure increased [Recovered/Resolved]
  - Physical deconditioning [Not Recovered/Not Resolved]
  - Musculoskeletal stiffness [Recovering/Resolving]
  - Nasopharyngitis [Recovering/Resolving]
  - Malaise [Not Recovered/Not Resolved]
  - Dry skin [Unknown]
  - Musculoskeletal stiffness [Unknown]
  - Eye pain [Recovering/Resolving]
  - C-reactive protein increased [Recovering/Resolving]

NARRATIVE: CASE EVENT DATE: 20240101
